FAERS Safety Report 12892609 (Version 1)
Quarter: 2016Q4

REPORT INFORMATION
  Report Type: Spontaneous
  Country: US (occurrence: US)
  Receive Date: 20161028
  Receipt Date: 20161028
  Transmission Date: 20170207
  Serious: Yes (Life-Threatening, Hospitalization, Disabling, Other)
  Sender: FDA-Public Use
  Company Number: None

PATIENT
  Age: 85 Year
  Sex: Female
  Weight: 50.3 kg

DRUGS (13)
  1. APIXABAN [Concomitant]
     Active Substance: APIXABAN
  2. OMEPRAZOLE. [Concomitant]
     Active Substance: OMEPRAZOLE
  3. DOCUSATE-SENNA [Concomitant]
  4. MECLIZINE [Concomitant]
     Active Substance: MECLIZINE HYDROCHLORIDE
  5. LOSARTAN. [Concomitant]
     Active Substance: LOSARTAN
  6. CALCIUM 600+D [Concomitant]
     Active Substance: CALCIUM\VITAMIN D
  7. SIMETHICONE (DIMETHICONE) [Concomitant]
     Active Substance: DIMETHICONE
  8. DRAMAMINE [Suspect]
     Active Substance: DIMENHYDRINATE
     Indication: VERTIGO
     Dates: start: 20161020, end: 20161020
  9. ESCITALOPRAM [Concomitant]
     Active Substance: ESCITALOPRAM OXALATE
  10. MIRTAZAPINE. [Concomitant]
     Active Substance: MIRTAZAPINE
  11. DRAMAMINE [Suspect]
     Active Substance: DIMENHYDRINATE
     Indication: DIZZINESS
     Dates: start: 20161020, end: 20161020
  12. MULTIVITAMIN [Concomitant]
     Active Substance: VITAMINS
  13. PROBIOTIC [Concomitant]
     Active Substance: PROBIOTICS NOS

REACTIONS (8)
  - Cardiac arrest [None]
  - Ventricular fibrillation [None]
  - Device malfunction [None]
  - Acute respiratory failure [None]
  - Cardiac failure congestive [None]
  - Acute kidney injury [None]
  - Fall [None]
  - Electrocardiogram QT prolonged [None]

NARRATIVE: CASE EVENT DATE: 20161020
